FAERS Safety Report 6306657-2 (Version None)
Quarter: 2009Q3

REPORT INFORMATION
  Report Type: 
  Country: None (occurrence: None)
  Receive Date: 20090811
  Receipt Date: 20090811
  Transmission Date: 20100115
  Serious: Yes (Death, Hospitalization)
  Sender: FDA-Public Use
  Company Number: None

PATIENT
  Age: 71 Year
  Sex: Male
  Weight: 50.3493 kg

DRUGS (2)
  1. ERLOTINIB [Suspect]
     Indication: SQUAMOUS CELL CARCINOMA
     Dosage: 150 MG/QD
     Dates: start: 20090527, end: 20090803
  2. SULINDAC [Suspect]
     Indication: SQUAMOUS CELL CARCINOMA
     Dosage: 150 MG/QD
     Dates: start: 20090527, end: 20090803

REACTIONS (8)
  - DEEP VEIN THROMBOSIS [None]
  - ELECTROMECHANICAL DISSOCIATION [None]
  - IMPLANT SITE EFFUSION [None]
  - MUSCLE SPASMS [None]
  - NO THERAPEUTIC RESPONSE [None]
  - PERITONITIS [None]
  - PULMONARY EMBOLISM [None]
  - UNRESPONSIVE TO STIMULI [None]
